FAERS Safety Report 21924906 (Version 4)
Quarter: 2023Q4

REPORT INFORMATION
  Report Type: Spontaneous
  Country: US (occurrence: US)
  Receive Date: 20230130
  Receipt Date: 20231109
  Transmission Date: 20240110
  Serious: Yes (Other)
  Sender: FDA-Public Use
  Company Number: US-JNJFOC-20230149221

PATIENT
  Sex: Male

DRUGS (3)
  1. TYLENOL REGULAR STRENGTH [Suspect]
     Active Substance: ACETAMINOPHEN
     Indication: Pain
     Dosage: 3-5 TIMES PER WEEK
     Route: 048
     Dates: start: 201701, end: 201709
  2. MAGNESIUM [Concomitant]
     Active Substance: MAGNESIUM
     Indication: Prenatal care
     Dosage: 2-3 TIMES PER WEEK
     Route: 064
     Dates: start: 201705, end: 201709
  3. FERROUS SULFATE [Concomitant]
     Active Substance: FERROUS SULFATE
     Indication: Prenatal care
     Dosage: 1 PILL, ONCE PER DAY
     Route: 064
     Dates: start: 201707, end: 201709

REACTIONS (2)
  - Autism spectrum disorder [Unknown]
  - Foetal exposure during pregnancy [Unknown]

NARRATIVE: CASE EVENT DATE: 20170101
